FAERS Safety Report 25291313 (Version 2)
Quarter: 2025Q2

REPORT INFORMATION
  Report Type: Spontaneous
  Country: US (occurrence: US)
  Receive Date: 20250510
  Receipt Date: 20250510
  Transmission Date: 20250717
  Serious: No
  Sender: SANOFI AVENTIS
  Company Number: US-SA-2025SA115410

PATIENT
  Sex: Male

DRUGS (1)
  1. ALTUVIIIO [Suspect]
     Active Substance: EFANESOCTOCOG ALFA
     Indication: Factor VIII deficiency
     Dosage: 50.9 IU/KG, QW
     Route: 042
     Dates: start: 202408

REACTIONS (6)
  - Chest discomfort [Unknown]
  - Tachycardia [Unknown]
  - Palpitations [Unknown]
  - Dyspnoea [Unknown]
  - Migraine [Unknown]
  - Dizziness [Unknown]

NARRATIVE: CASE EVENT DATE: 20250325
